FAERS Safety Report 8935297 (Version 1)
Quarter: 2012Q4

REPORT INFORMATION
  Report Type: 
  Country: CU (occurrence: CU)
  Receive Date: 20121129
  Receipt Date: 20121129
  Transmission Date: 20130627
  Serious: Yes (Life-Threatening, Disabling, Other)
  Sender: FDA-Public Use
  Company Number: CU-GLAXOSMITHKLINE-A1003284A

PATIENT
  Sex: Female

DRUGS (1)
  1. SERETIDE [Suspect]
     Indication: ASTHMA
     Route: 055
     Dates: start: 2003, end: 2003

REACTIONS (11)
  - Suicidal ideation [Recovered/Resolved with Sequelae]
  - Inflammation [Unknown]
  - Osteitis [Unknown]
  - Arthritis [Unknown]
  - Bone pain [Unknown]
  - Insomnia [Unknown]
  - Headache [Unknown]
  - Abdominal distension [Unknown]
  - Respiratory tract irritation [Unknown]
  - Gastrointestinal disorder [Unknown]
  - Gastric disorder [Unknown]
